FAERS Safety Report 7357366-2 (Version None)
Quarter: 2011Q1

REPORT INFORMATION
  Report Type: 
  Country: None (occurrence: None)
  Receive Date: 20110307
  Receipt Date: 20110221
  Transmission Date: 20110831
  Serious: Yes (Disabling)
  Sender: FDA-Public Use
  Company Number: FR-004283

PATIENT
  Sex: Female

DRUGS (5)
  1. MENOPUR [Suspect]
     Indication: PRODUCT USED FOR UNKNOWN INDICATION
     Dosage: SUBCUTANEOUS, SUBCUTANEOUS, SUBCUTANEOUS, 300 IU QD SUBCUTANEOUS
     Route: 058
     Dates: start: 20100922
  2. MENOPUR [Suspect]
     Indication: PRODUCT USED FOR UNKNOWN INDICATION
     Dosage: SUBCUTANEOUS, SUBCUTANEOUS, SUBCUTANEOUS, 300 IU QD SUBCUTANEOUS
     Route: 058
     Dates: start: 20101201, end: 20101210
  3. MENOPUR [Suspect]
     Indication: PRODUCT USED FOR UNKNOWN INDICATION
     Dosage: SUBCUTANEOUS, SUBCUTANEOUS, SUBCUTANEOUS, 300 IU QD SUBCUTANEOUS
     Route: 058
     Dates: start: 20101001, end: 20101001
  4. MENOPUR [Suspect]
     Indication: PRODUCT USED FOR UNKNOWN INDICATION
     Dosage: SUBCUTANEOUS, SUBCUTANEOUS, SUBCUTANEOUS, 300 IU QD SUBCUTANEOUS
     Route: 058
     Dates: start: 20101101, end: 20101101
  5. PROVAMES [Concomitant]

REACTIONS (2)
  - FATIGUE [None]
  - MOBILITY DECREASED [None]
